FAERS Safety Report 17663291 (Version 5)
Quarter: 2020Q4

REPORT INFORMATION
  Report Type: Spontaneous
  Country: US (occurrence: US)
  Receive Date: 20200414
  Receipt Date: 20201224
  Transmission Date: 20210113
  Serious: No
  Sender: FDA-Public Use
  Company Number: US-GLAXOSMITHKLINE-US2020AMR058920

PATIENT
  Sex: Female

DRUGS (4)
  1. ZEJULA [Suspect]
     Active Substance: NIRAPARIB
     Dosage: 200 MG, QD
     Route: 065
  2. ZEJULA [Suspect]
     Active Substance: NIRAPARIB
     Indication: OVARIAN CANCER
     Dosage: 200 MG, DAILY
     Route: 048
     Dates: start: 20191014
  3. ZEJULA [Suspect]
     Active Substance: NIRAPARIB
     Dosage: 200 MG, QD
     Route: 065
  4. ZEJULA [Suspect]
     Active Substance: NIRAPARIB
     Dosage: 200 MG, QD
     Route: 065

REACTIONS (13)
  - Constipation [Unknown]
  - Adverse drug reaction [Unknown]
  - Mass [Unknown]
  - Product dose omission issue [Unknown]
  - Nausea [Not Recovered/Not Resolved]
  - Palpitations [Unknown]
  - Heart rate increased [Not Recovered/Not Resolved]
  - Fatigue [Not Recovered/Not Resolved]
  - Photosensitivity reaction [Not Recovered/Not Resolved]
  - Lymphadenopathy [Unknown]
  - Underdose [Unknown]
  - Lung disorder [Unknown]
  - Abnormal dreams [Unknown]
